FAERS Safety Report 21488371 (Version 1)
Quarter: 2022Q4

REPORT INFORMATION
  Report Type: Spontaneous
  Country: US (occurrence: US)
  Receive Date: 20221021
  Receipt Date: 20221021
  Transmission Date: 20230113
  Serious: Yes (Other)
  Sender: FDA-Public Use
  Company Number: US-BIOGEN-2022BI01163023

PATIENT
  Age: 40 Year
  Sex: Female

DRUGS (1)
  1. SPINRAZA [Suspect]
     Active Substance: NUSINERSEN
     Indication: Spinal muscular atrophy
     Route: 050
     Dates: start: 20220830

REACTIONS (2)
  - Femur fracture [Not Recovered/Not Resolved]
  - Fall [Recovered/Resolved]

NARRATIVE: CASE EVENT DATE: 20221009
